FAERS Safety Report 5190488-3 (Version None)
Quarter: 2006Q4

REPORT INFORMATION
  Report Type: 
  Country: None (occurrence: None)
  Receive Date: 20061222
  Receipt Date: 20050804
  Transmission Date: 20070319
  Serious: Yes (Hospitalization)
  Sender: FDA-Public Use
  Company Number: JP-GLAXOSMITHKLINE-B0390089A

PATIENT
  Age: 75 Year
  Sex: Female

DRUGS (17)
  1. EPIVIR [Suspect]
     Indication: HIV INFECTION
     Route: 048
     Dates: start: 20021126, end: 20060614
  2. VIREAD [Suspect]
     Indication: HIV INFECTION
     Dosage: 300MG PER DAY
     Route: 048
     Dates: start: 20021001, end: 20050614
  3. NORVIR [Suspect]
     Indication: HIV INFECTION
     Dosage: 100MG PER DAY
     Route: 048
     Dates: start: 20040227
  4. REYATAZ [Suspect]
     Indication: HIV INFECTION
     Dosage: 300MG PER DAY
     Route: 048
     Dates: start: 20040227
  5. BLOPRESS [Concomitant]
     Indication: HYPERTENSION
     Dosage: 8MG PER DAY
     Route: 048
     Dates: start: 20040401
  6. ADALAT [Concomitant]
     Indication: HYPERTENSION
     Dosage: 20MG TWICE PER DAY
     Route: 048
     Dates: start: 20040401, end: 20050614
  7. CIBENOL [Concomitant]
     Indication: ARRHYTHMIA
     Dosage: 100MG TWICE PER DAY
     Route: 065
     Dates: start: 20040401, end: 20060905
  8. ASPIRIN [Concomitant]
     Indication: ARRHYTHMIA
     Dosage: 100MG PER DAY
     Route: 048
     Dates: start: 20040401
  9. FRANDOL S [Concomitant]
     Indication: ARRHYTHMIA
     Dosage: 1UNIT PER DAY
     Route: 062
     Dates: start: 20040401, end: 20060516
  10. BACTRIM [Concomitant]
     Indication: INFECTION PROPHYLAXIS
     Dosage: 1UNIT PER DAY
     Route: 048
     Dates: start: 20040401, end: 20050905
  11. ADALAT [Concomitant]
     Indication: HYPERTENSION
     Dosage: 5MG PER DAY
     Route: 048
     Dates: start: 20040928, end: 20040929
  12. HERBESSER [Concomitant]
     Indication: HYPERTENSION
     Dosage: 30MG PER DAY
     Route: 048
     Dates: start: 20041005
  13. TRUVADA [Concomitant]
     Indication: HIV INFECTION
     Route: 048
     Dates: start: 20060615
  14. NITRODERM [Concomitant]
     Indication: HYPERTENSION
     Route: 062
     Dates: start: 20050517
  15. WARFARIN SODIUM [Concomitant]
     Route: 048
     Dates: start: 20050614
  16. GASTER D [Concomitant]
     Indication: GASTRIC ULCER
     Dosage: 10MG PER DAY
     Route: 048
     Dates: start: 20050614
  17. DOGMATYL [Concomitant]
     Indication: GASTRIC ULCER
     Route: 065
     Dates: start: 20050614

REACTIONS (2)
  - CHEST PAIN [None]
  - IRON DEFICIENCY ANAEMIA [None]
